FAERS Safety Report 20957495 (Version 4)
Quarter: 2022Q4

REPORT INFORMATION
  Report Type: Spontaneous
  Country: JP (occurrence: JP)
  Receive Date: 20220614
  Receipt Date: 20221101
  Transmission Date: 20230112
  Serious: Yes (Other)
  Sender: FDA-Public Use
  Company Number: JP-ONO-2022JP016138

PATIENT
  Sex: Male

DRUGS (4)
  1. BRAFTOVI [Suspect]
     Active Substance: ENCORAFENIB
     Dosage: UNK, EVERYDAY
     Route: 048
     Dates: start: 20211117
  2. BRAFTOVI [Suspect]
     Active Substance: ENCORAFENIB
     Dosage: UNK, EVERYDAY
     Route: 048
  3. MEKTOVI [Suspect]
     Active Substance: BINIMETINIB
     Dosage: UNK, EVERYDAY
     Route: 048
     Dates: start: 20211117
  4. MEKTOVI [Suspect]
     Active Substance: BINIMETINIB
     Dosage: UNK, EVERYDAY
     Route: 048

REACTIONS (4)
  - Tooth extraction [Not Recovered/Not Resolved]
  - Infection [Recovering/Resolving]
  - White blood cell count decreased [Recovering/Resolving]
  - Platelet count decreased [Recovering/Resolving]

NARRATIVE: CASE EVENT DATE: 20220506
